FAERS Safety Report 6960702-X (Version None)
Quarter: 2010Q3

REPORT INFORMATION
  Report Type: 
  Country: None (occurrence: None)
  Receive Date: 20100901
  Receipt Date: 20100826
  Transmission Date: 20110219
  Serious: Yes (Death)
  Sender: FDA-Public Use
  Company Number: DE-ROCHE-631160

PATIENT
  Sex: Female
  Weight: 68 kg

DRUGS (4)
  1. MYCOPHENOLATE MOFETIL [Suspect]
     Route: 065
  2. TACROLIMUS [Suspect]
     Route: 065
  3. HYDROCORTISON [Concomitant]
     Indication: IMMUNOSUPPRESSION
  4. VALCYTE [Concomitant]

REACTIONS (6)
  - ASCITES [None]
  - COAGULOPATHY [None]
  - MULTI-ORGAN FAILURE [None]
  - SEPSIS [None]
  - SEPTIC SHOCK [None]
  - TRANSPLANT REJECTION [None]
